FAERS Safety Report 21403231 (Version 1)
Quarter: 2022Q4

REPORT INFORMATION
  Report Type: Spontaneous
  Country: US (occurrence: US)
  Receive Date: 20221003
  Receipt Date: 20221003
  Transmission Date: 20230113
  Serious: Yes (Other)
  Sender: FDA-Public Use
  Company Number: US-PROVEPHARM, INC.-2022-APO-000017

PATIENT

DRUGS (1)
  1. TRANEXAMIC ACID [Suspect]
     Active Substance: TRANEXAMIC ACID
     Indication: Injury
     Route: 065

REACTIONS (2)
  - Acute respiratory distress syndrome [Unknown]
  - Off label use [Unknown]
